FAERS Safety Report 9329446 (Version 1)
Quarter: 2013Q2

REPORT INFORMATION
  Report Type: Spontaneous
  Country: US (occurrence: US)
  Receive Date: 20130604
  Receipt Date: 20130604
  Transmission Date: 20140414
  Serious: No
  Sender: FDA-Public Use
  Company Number: US-SANOFI-AVENTIS-2012SA092967

PATIENT
  Sex: Male

DRUGS (4)
  1. LANTUS SOLOSTAR [Suspect]
  2. SOLOSTAR [Suspect]
  3. GLYBURIDE [Concomitant]
  4. JANUVIA [Concomitant]

REACTIONS (2)
  - Feeling abnormal [Unknown]
  - Dizziness [Unknown]
